FAERS Safety Report 9860645 (Version 2)
Quarter: 2014Q1

REPORT INFORMATION
  Report Type: Spontaneous
  Country: IE (occurrence: IE)
  Receive Date: 20140202
  Receipt Date: 20140202
  Transmission Date: 20141002
  Serious: No
  Sender: FDA-Public Use
  Company Number: IE-ALLERGAN-1300297US

PATIENT
  Sex: Female

DRUGS (3)
  1. BOTOX [Suspect]
     Indication: MIGRAINE
     Dosage: 36 UNITS, SINGLE
     Route: 030
     Dates: start: 20120209, end: 20120209
  2. BOTOX [Suspect]
     Dosage: 36 UNITS, SINGLE
     Route: 030
     Dates: start: 20111015, end: 20111015
  3. BOTOX [Suspect]
     Dosage: 36 UNITS, SINGLE
     Route: 030
     Dates: start: 20110618, end: 20110618

REACTIONS (13)
  - Palpitations [Unknown]
  - Back pain [Unknown]
  - Anxiety [Unknown]
  - Vertigo [Unknown]
  - Vomiting [Unknown]
  - Muscle spasms [Unknown]
  - Headache [Unknown]
  - Vision blurred [Unknown]
  - Dysphagia [Unknown]
  - Tinnitus [Unknown]
  - Diplopia [Unknown]
  - Eyelid ptosis [Unknown]
  - Lacrimation increased [Unknown]
